FAERS Safety Report 10803048 (Version 8)
Quarter: 2016Q1

REPORT INFORMATION
  Report Type: Report from Study
  Country: JP (occurrence: JP)
  Receive Date: 20150217
  Receipt Date: 20160218
  Transmission Date: 20160525
  Serious: Yes (Other)
  Sender: FDA-Public Use
  Company Number: JP-INCYTE CORPORATION-2015IN000164

PATIENT
  Age: 73 Year
  Sex: Female

DRUGS (5)
  1. JAKAFI [Suspect]
     Active Substance: RUXOLITINIB
     Dosage: 5 MG, TID
     Route: 048
     Dates: start: 20141128, end: 20141219
  2. JAKAFI [Suspect]
     Active Substance: RUXOLITINIB
     Dosage: 5 MG, BID
     Route: 048
     Dates: start: 20141004, end: 20141127
  3. JAKAFI [Suspect]
     Active Substance: RUXOLITINIB
     Dosage: 2.5 MG, BID
     Route: 048
     Dates: start: 20150116
  4. JAKAFI [Suspect]
     Active Substance: RUXOLITINIB
     Indication: MYELOFIBROSIS
     Dosage: 5 MG, QD
     Route: 048
     Dates: start: 20140929, end: 20141003
  5. JAKAFI [Suspect]
     Active Substance: RUXOLITINIB
     Dosage: 5 MG, BID
     Route: 048
     Dates: start: 20141220, end: 20150109

REACTIONS (11)
  - Therapeutic response unexpected [Unknown]
  - Dementia [Recovered/Resolved]
  - Paranasal sinus mucosal hypertrophy [Unknown]
  - Cerebral infarction [Unknown]
  - White matter lesion [Unknown]
  - Platelet count decreased [Recovering/Resolving]
  - Haemoglobin decreased [Recovered/Resolved]
  - Cerebral atrophy [Unknown]
  - Cough [Unknown]
  - Hyperuricaemia [Recovering/Resolving]
  - Marrow hyperplasia [Unknown]

NARRATIVE: CASE EVENT DATE: 20141114
